FAERS Safety Report 7806117-3 (Version None)
Quarter: 2011Q4

REPORT INFORMATION
  Report Type: 
  Country: None (occurrence: None)
  Receive Date: 20111011
  Receipt Date: 20111005
  Transmission Date: 20120403
  Serious: Yes (Hospitalization, Other)
  Sender: FDA-Public Use
  Company Number: US-PFIZER INC-2011152967

PATIENT
  Sex: Male

DRUGS (3)
  1. LAMICTAL [Concomitant]
     Indication: BIPOLAR DISORDER
     Dosage: UNK
  2. CHANTIX [Suspect]
     Indication: SMOKING CESSATION THERAPY
     Dosage: CONTINUING MONTH BOX SECOND BOX
     Dates: start: 20100101, end: 20100409
  3. LAMICTAL [Concomitant]
     Indication: CONVULSION

REACTIONS (5)
  - CONVULSION [None]
  - DEPRESSION [None]
  - SUICIDAL IDEATION [None]
  - ANXIETY [None]
  - NIGHTMARE [None]
